FAERS Safety Report 7610677-5 (Version None)
Quarter: 2011Q3

REPORT INFORMATION
  Report Type: 
  Country: None (occurrence: None)
  Receive Date: 20110715
  Receipt Date: 20110713
  Transmission Date: 20111222
  Serious: Yes (Other)
  Sender: FDA-Public Use
  Company Number: US-PFIZER INC-2011158594

PATIENT

DRUGS (1)
  1. RAPAMUNE [Suspect]

REACTIONS (1)
  - LYMPHADENOPATHY [None]
